FAERS Safety Report 23076556 (Version 3)
Quarter: 2024Q1

REPORT INFORMATION
  Report Type: Spontaneous
  Country: US (occurrence: US)
  Receive Date: 20231017
  Receipt Date: 20240207
  Transmission Date: 20240410
  Serious: Yes (Hospitalization, Other)
  Sender: FDA-Public Use
  Company Number: US-BRISTOL-MYERS SQUIBB COMPANY-2023-147792

PATIENT
  Age: 80 Year
  Sex: Female

DRUGS (3)
  1. LENALIDOMIDE [Suspect]
     Active Substance: LENALIDOMIDE
     Indication: Plasma cell myeloma
     Dosage: PATIENT RECEIVED LENALIDOMIDE THERAPY AT DOSE OF 20 MG TAKE 1 CAPSULE BY MOUTH EVERY DAY FOR 14 DAYS
     Route: 048
  2. LENALIDOMIDE [Suspect]
     Active Substance: LENALIDOMIDE
     Route: 048
  3. LENALIDOMIDE [Suspect]
     Active Substance: LENALIDOMIDE
     Dosage: TAKE 1 CAPSULE BY MOUTH EVERY DAY FOR 14 DAY
     Route: 048

REACTIONS (4)
  - Off label use [Unknown]
  - Sepsis [Recovering/Resolving]
  - Blood pressure orthostatic decreased [Recovering/Resolving]
  - Memory impairment [Not Recovered/Not Resolved]
